FAERS Safety Report 18257174 (Version 2)
Quarter: 2020Q3

REPORT INFORMATION
  Report Type: Spontaneous
  Country: DE (occurrence: DE)
  Receive Date: 20200911
  Receipt Date: 20200918
  Transmission Date: 20201103
  Serious: Yes (Congenital Anomaly, Other)
  Sender: FDA-Public Use
  Company Number: DE-TAKEDA-2020TUS038071

PATIENT

DRUGS (2)
  1. ENTYVIO [Suspect]
     Active Substance: VEDOLIZUMAB
     Indication: COLITIS
     Dosage: 300 MILLIGRAM
     Route: 063
     Dates: start: 20200512
  2. ENTYVIO [Suspect]
     Active Substance: VEDOLIZUMAB
     Indication: CROHN^S DISEASE
     Dosage: 300 MILLIGRAM
     Route: 063
     Dates: start: 20181217, end: 20190416

REACTIONS (4)
  - Anencephaly [Unknown]
  - Neural tube defect [Unknown]
  - Congenital central nervous system anomaly [Unknown]
  - Stillbirth [Recovered/Resolved]
